FAERS Safety Report 7318666-5 (Version None)
Quarter: 2011Q1

REPORT INFORMATION
  Report Type: 
  Country: None (occurrence: None)
  Receive Date: 20110228
  Receipt Date: 20110214
  Transmission Date: 20110831
  Serious: Yes (Hospitalization, Other)
  Sender: FDA-Public Use
  Company Number: US-RANBAXY-2011US-41860

PATIENT

DRUGS (4)
  1. ISOTRETINOIN [Suspect]
     Dosage: 40 MG, BID
     Route: 065
  2. ISOTRETINOIN [Suspect]
     Indication: ACNE
     Dosage: 10 MG, QD
     Route: 065
     Dates: start: 20060501
  3. BENZOYL PEROXIDE WASH [Concomitant]
     Indication: PRODUCT USED FOR UNKNOWN INDICATION
     Dosage: UNK
     Route: 065
  4. ISOTRETINOIN [Suspect]
     Dosage: 20 MG, QD
     Route: 065

REACTIONS (4)
  - DRUG INEFFECTIVE [None]
  - CROHN'S DISEASE [None]
  - DRY SKIN [None]
  - HEART RATE INCREASED [None]
